FAERS Safety Report 20157811 (Version 1)
Quarter: 2021Q4

REPORT INFORMATION
  Report Type: Spontaneous
  Country: US (occurrence: US)
  Receive Date: 20211207
  Receipt Date: 20211207
  Transmission Date: 20220303
  Serious: No
  Sender: FDA-Public Use
  Company Number: US-PFIZER INC-202101456929

PATIENT
  Age: 81 Year
  Sex: Female

DRUGS (6)
  1. IBRANCE [Suspect]
     Active Substance: PALBOCICLIB
     Dosage: 125 MG
     Dates: start: 20210907
  2. IBRANCE [Suspect]
     Active Substance: PALBOCICLIB
     Dosage: 125 MG
     Dates: start: 20211005
  3. IBRANCE [Suspect]
     Active Substance: PALBOCICLIB
     Dosage: 100 MG
     Dates: start: 20211015, end: 20211029
  4. IBRANCE [Suspect]
     Active Substance: PALBOCICLIB
     Dosage: 100 MG
     Dates: start: 20211026
  5. LETROZOLE [Concomitant]
     Active Substance: LETROZOLE
     Dosage: 100 MG (STARTED 100 MG INSTEAD OF 125MG)
  6. XARELTO [Concomitant]
     Active Substance: RIVAROXABAN
     Indication: Pulmonary embolism
     Dosage: UNK

REACTIONS (10)
  - Fatigue [Recovered/Resolved]
  - Dizziness [Unknown]
  - Vertigo [Recovered/Resolved]
  - Lethargy [Recovered/Resolved]
  - Discomfort [Unknown]
  - Dysstasia [Recovered/Resolved]
  - Stomatitis [Unknown]
  - Pain in extremity [Unknown]
  - Paraesthesia [Unknown]
  - Arthralgia [Unknown]

NARRATIVE: CASE EVENT DATE: 20210901
